FAERS Safety Report 9860302 (Version 2)
Quarter: 2014Q1

REPORT INFORMATION
  Report Type: Spontaneous
  Country: BR (occurrence: BR)
  Receive Date: 20140201
  Receipt Date: 20140205
  Transmission Date: 20141002
  Serious: Yes (Other)
  Sender: FDA-Public Use
  Company Number: BR-PFIZER INC-2014026906

PATIENT
  Sex: Female

DRUGS (2)
  1. FRONTAL XR [Suspect]
     Indication: SLEEP DISORDER
     Dosage: 1 MG, UNK
  2. FRONTAL XR [Suspect]
     Indication: ANXIETY

REACTIONS (3)
  - Intraductal proliferative breast lesion [Unknown]
  - Drug dependence [Unknown]
  - Off label use [Unknown]
